FAERS Safety Report 8225515 (Version 5)
Quarter: 2012Q4

REPORT INFORMATION
  Report Type: 
  Country: JP (occurrence: JP)
  Receive Date: 20111103
  Receipt Date: 20121214
  Transmission Date: 20130627
  Serious: Yes (Life-Threatening, Hospitalization, Disabling, Other)
  Sender: FDA-Public Use
  Company Number: JP-PFIZER INC-2011267459

PATIENT
  Age: 38 Year
  Sex: Female
  Weight: 51 kg

DRUGS (6)
  1. HYSRON-H [Suspect]
     Indication: ENDOMETRIOID ADENOCARCINOMA STAGE I
     Dosage: 200 mg, 2x/day
     Route: 048
     Dates: start: 20110606, end: 20111024
  2. CINAL [Concomitant]
     Dosage: 2 tablets twice daily
     Route: 048
  3. JUVELA NICOTINATE [Concomitant]
     Dosage: 200 mg, 2x/day
     Route: 048
  4. MAG-LAX [Concomitant]
     Dosage: 500 mg, 3x/day
     Route: 048
  5. LOXOPROFEN [Concomitant]
     Dosage: 60 mg, 3x/day
  6. TAKEPRON [Concomitant]
     Dosage: 30 mg, 1x/day

REACTIONS (3)
  - Cerebral haemorrhage [Recovered/Resolved with Sequelae]
  - Intracranial venous sinus thrombosis [Recovered/Resolved with Sequelae]
  - Febrile neutropenia [Recovered/Resolved]
